FAERS Safety Report 15877865 (Version 2)
Quarter: 2019Q1

REPORT INFORMATION
  Report Type: Report from Study
  Country: US (occurrence: US)
  Receive Date: 20190128
  Receipt Date: 20190222
  Transmission Date: 20190417
  Serious: Yes (Other)
  Sender: FDA-Public Use
  Company Number: US-ROCHE-2252026

PATIENT

DRUGS (1)
  1. RITUXIMAB. [Suspect]
     Active Substance: RITUXIMAB
     Indication: WALDENSTROM^S MACROGLOBULINAEMIA
     Dosage: DAYS 1, 8, 15, AND 22
     Route: 042

REACTIONS (29)
  - Dyspnoea [Unknown]
  - Headache [Unknown]
  - Peripheral sensory neuropathy [Unknown]
  - Hypomagnesaemia [Unknown]
  - Hypercalcaemia [Unknown]
  - Hyperglycaemia [Unknown]
  - Hypertension [Unknown]
  - Hyponatraemia [Unknown]
  - Hyperkalaemia [Unknown]
  - Hypermagnesaemia [Unknown]
  - Fatigue [Unknown]
  - Myalgia [Unknown]
  - Hypotension [Unknown]
  - Hypoglycaemia [Unknown]
  - Neutrophil count decreased [Unknown]
  - Lymphopenia [Unknown]
  - Chills [Unknown]
  - Blood creatinine increased [Unknown]
  - Arthralgia [Unknown]
  - Blood disorder [Unknown]
  - Haemoglobin decreased [Unknown]
  - White blood cell count decreased [Unknown]
  - Platelet count decreased [Unknown]
  - Sinus tachycardia [Unknown]
  - Haemorrhage [Unknown]
  - Hypocalcaemia [Unknown]
  - Hypernatraemia [Unknown]
  - Hypersensitivity [Unknown]
  - Hypokalaemia [Unknown]
